FAERS Safety Report 5987155-2 (Version None)
Quarter: 2008Q4

REPORT INFORMATION
  Report Type: 
  Country: None (occurrence: None)
  Receive Date: 20081209
  Receipt Date: 20081128
  Transmission Date: 20090506
  Serious: Yes (Other)
  Sender: FDA-Public Use
  Company Number: CN-PFIZER INC-2008101286

PATIENT

DRUGS (3)
  1. LIPITOR [Suspect]
     Indication: CORONARY ARTERY DISEASE
     Route: 048
     Dates: start: 20080501
  2. ISOSORBIDE DINITRATE [Concomitant]
     Route: 048
  3. VITAMINS [Concomitant]
     Route: 048

REACTIONS (1)
  - CHRONIC HEPATITIS [None]
